FAERS Safety Report 7564245-4 (Version None)
Quarter: 2011Q2

REPORT INFORMATION
  Report Type: 
  Country: None (occurrence: None)
  Receive Date: 20110622
  Receipt Date: 20110608
  Transmission Date: 20111010
  Serious: Yes (Other)
  Sender: FDA-Public Use
  Company Number: PHHY2011US50527

PATIENT
  Sex: Female

DRUGS (1)
  1. RECLAST [Suspect]
     Indication: OSTEOPOROSIS POSTMENOPAUSAL
     Dosage: 5 MG/ YEAR
     Route: 042
     Dates: start: 20100501

REACTIONS (3)
  - MOVEMENT DISORDER [None]
  - GAIT DISTURBANCE [None]
  - TREMOR [None]
